FAERS Safety Report 13241301 (Version 1)
Quarter: 2017Q1

REPORT INFORMATION
  Report Type: Spontaneous
  Country: US (occurrence: US)
  Receive Date: 20170216
  Receipt Date: 20170216
  Transmission Date: 20170428
  Serious: No
  Sender: FDA-Public Use
  Company Number: US-MYLANLABS-2016M1002054

PATIENT
  Sex: Female
  Weight: 77.98 kg

DRUGS (1)
  1. EPINEPHRINE. [Suspect]
     Active Substance: EPINEPHRINE
     Dosage: UNK
     Dates: start: 2013, end: 2013

REACTIONS (2)
  - Accidental exposure to product [Recovered/Resolved]
  - Expired product administered [Recovered/Resolved]

NARRATIVE: CASE EVENT DATE: 2013
